FAERS Safety Report 7620392-X (Version None)
Quarter: 2011Q3

REPORT INFORMATION
  Report Type: 
  Country: None (occurrence: None)
  Receive Date: 20110718
  Receipt Date: 20110718
  Transmission Date: 20111222
  Serious: Yes (Death)
  Sender: FDA-Public Use
  Company Number: None

PATIENT
  Sex: Male
  Weight: 63 kg

DRUGS (1)
  1. DABIGITRAN [Suspect]
     Indication: ATRIAL FIBRILLATION
     Dates: start: 20110706, end: 20110713

REACTIONS (4)
  - HAEMOGLOBIN DECREASED [None]
  - HAEMODIALYSIS [None]
  - HYPOTENSION [None]
  - URETHRAL HAEMORRHAGE [None]
